FAERS Safety Report 18166604 (Version 1)
Quarter: 2020Q3

REPORT INFORMATION
  Report Type: Spontaneous
  Country: DE (occurrence: DE)
  Receive Date: 20200819
  Receipt Date: 20200819
  Transmission Date: 20201103
  Serious: Yes (Hospitalization)
  Sender: FDA-Public Use
  Company Number: DE-TEVA-2020-DE-1815481

PATIENT
  Age: 74 Year
  Sex: Male

DRUGS (10)
  1. LONQUEX 6MG [Suspect]
     Active Substance: LIPEGFILGRASTIM
     Dosage: 6 MG, LAST 19?MAR?2020
     Route: 065
  2. ETOPOSID [Suspect]
     Active Substance: ETOPOSIDE
     Dosage: LAST 19?MAR?2020
     Route: 065
  3. RAMIPRIL. [Concomitant]
     Active Substance: RAMIPRIL
     Dosage: 5 MILLIGRAM DAILY; 1?0?0?0
  4. MIRTAZAPIN [Concomitant]
     Active Substance: MIRTAZAPINE
     Dosage: 15 MILLIGRAM DAILY; 0?0?1?0
  5. FOLSAURE [Concomitant]
     Active Substance: FOLIC ACID
     Dosage: .5 MILLIGRAM DAILY; 1?0?0?0
  6. METAMIZOL [Concomitant]
     Active Substance: METAMIZOLE SODIUM
     Dosage: 500 MG, IF NECESSARY
  7. CARBOPLATIN. [Suspect]
     Active Substance: CARBOPLATIN
     Dosage: LAST 19?MAR?2020
     Route: 065
  8. HYDROXOCOBALAMIN [Concomitant]
     Active Substance: HYDROXOCOBALAMIN
     Dosage: 1X PER MONTH, UNIT DOSE: 1 DF
  9. AMLODIPIN [Concomitant]
     Active Substance: AMLODIPINE BESYLATE
     Dosage: 5 MILLIGRAM DAILY;  1?0?0?0
  10. ATEZOLIZUMAB. [Suspect]
     Active Substance: ATEZOLIZUMAB
     Dosage: LAST 19?MAR?2020
     Route: 065

REACTIONS (2)
  - General physical health deterioration [Unknown]
  - Pyrexia [Unknown]
